FAERS Safety Report 4988463-4 (Version None)
Quarter: 2006Q2

REPORT INFORMATION
  Report Type: 
  Country: None (occurrence: None)
  Receive Date: 20060502
  Receipt Date: 20060418
  Transmission Date: 20061013
  Serious: Yes (Hospitalization)
  Sender: FDA-Public Use
  Company Number: US-AMGEN-US176917

PATIENT
  Sex: Female

DRUGS (3)
  1. NEULASTA [Suspect]
     Indication: CHEMOTHERAPY
     Route: 065
     Dates: start: 20051011
  2. GEMZAR [Concomitant]
     Route: 065
  3. TAXOL [Concomitant]
     Route: 065

REACTIONS (2)
  - RAYNAUD'S PHENOMENON [None]
  - SEPSIS [None]
